FAERS Safety Report 4469566-X (Version None)
Quarter: 2004Q4

REPORT INFORMATION
  Report Type: 
  Country: None (occurrence: None)
  Receive Date: 20041005
  Receipt Date: 20041005
  Transmission Date: 20050328
  Serious: Yes (Hospitalization)
  Sender: FDA-Public Use
  Company Number: None

PATIENT
  Sex: Male

DRUGS (13)
  1. METOLAZONE [Suspect]
     Indication: CARDIAC FAILURE CONGESTIVE
     Dosage: 5 MG   DAILY   ORAL
     Route: 048
     Dates: start: 20040505, end: 20040513
  2. ASPIRIN [Concomitant]
  3. CARVEDILOL [Concomitant]
  4. FERROUS SULFATE TAB [Concomitant]
  5. FUROSEMIDE [Concomitant]
  6. GLIPIZIDE [Concomitant]
  7. LEVOTHYROXINE SODIUM [Concomitant]
  8. LISINOPRIL [Concomitant]
  9. METOCLOPRAMIDE [Concomitant]
  10. MULTI-VITAMIN [Concomitant]
  11. OMEPRAZOLE [Concomitant]
  12. TRAZODONE HCL [Concomitant]
  13. VALPROIC ACID [Concomitant]

REACTIONS (1)
  - BLOOD PRESSURE ORTHOSTATIC [None]
